FAERS Safety Report 10339509 (Version 3)
Quarter: 2014Q3

REPORT INFORMATION
  Report Type: Spontaneous
  Country: GB (occurrence: GB)
  Receive Date: 20140724
  Receipt Date: 20140819
  Transmission Date: 20150326
  Serious: Yes (Death, Other)
  Sender: FDA-Public Use
  Company Number: PHFR2014GB005176

PATIENT
  Age: 66 Year
  Sex: Male

DRUGS (23)
  1. SALBUTAMOL [Concomitant]
     Active Substance: ALBUTEROL
     Indication: ASTHMA
  2. PROMETHAZINE [Concomitant]
     Active Substance: PROMETHAZINE\PROMETHAZINE HYDROCHLORIDE
     Dosage: 50 MG, (PER 24 HOURS)
     Route: 048
  3. CLOZARIL [Suspect]
     Active Substance: CLOZAPINE
     Indication: SCHIZOPHRENIA
     Dosage: 575 MG, DAILY
     Route: 048
     Dates: start: 2005
  4. PHOSPHATE ENEMA [Concomitant]
     Indication: CONSTIPATION
     Dosage: 1 TUBE ONCE DAILY
     Route: 054
  5. ADCAL D3 [Concomitant]
     Active Substance: CALCIUM CARBONATE\CHOLECALCIFEROL
     Indication: OSTEOPENIA
     Dosage: UKN (CHEW) (PRE ADM)
     Route: 048
  6. PARACETAMOL [Concomitant]
     Active Substance: ACETAMINOPHEN
     Indication: PAIN
     Dosage: 1 G, DAILY
     Route: 048
  7. PARACETAMOL [Concomitant]
     Active Substance: ACETAMINOPHEN
     Indication: PYREXIA
     Dosage: MAX 4 GM IN 24 HRS
     Route: 048
  8. AMISULPRIDE [Concomitant]
     Active Substance: AMISULPRIDE
     Dosage: 400 MG, DAILY
     Route: 048
     Dates: start: 2013
  9. PROMETHAZINE [Concomitant]
     Active Substance: PROMETHAZINE\PROMETHAZINE HYDROCHLORIDE
     Dosage: 100 MG, (MAX 100 MG PER 24 HOURS)
     Route: 048
  10. AMLODIPINE [Concomitant]
     Active Substance: AMLODIPINE BESYLATE
     Indication: HYPERTENSION
     Dosage: 10 MG, DAILY
     Route: 048
  11. LAXIDO                             /06401201/ [Concomitant]
     Indication: CONSTIPATION
     Dosage: 2 DF (2 SACHETS DAILY)
     Route: 048
  12. PROMETHAZINE [Concomitant]
     Active Substance: PROMETHAZINE\PROMETHAZINE HYDROCHLORIDE
     Dosage: 100 MG, (MAX 100 MG PER 24 HOURS)
     Route: 048
  13. SALBUTAMOL [Concomitant]
     Active Substance: ALBUTEROL
     Indication: DYSPNOEA
     Dosage: 4 PUFFS DAILY (100 MCG/METERED DOSE)
     Route: 055
  14. HALOPERIDOL. [Concomitant]
     Active Substance: HALOPERIDOL
     Dosage: MAX 12 MG PER 24 HOURS
     Route: 048
  15. PROMETHAZINE [Concomitant]
     Active Substance: PROMETHAZINE\PROMETHAZINE HYDROCHLORIDE
     Dosage: 25 MG, (PER 24 HOURS)
     Route: 048
  16. PROCYCLIDINE [Concomitant]
     Active Substance: PROCYCLIDINE
     Dosage: 15 MG, (MAX 15 MG PER 24 HOURS)
     Route: 048
  17. LANSOPRAZOLE. [Concomitant]
     Active Substance: LANSOPRAZOLE
     Indication: DYSPEPSIA
     Dosage: 15 MG, DAILY, PRE ADM
     Route: 048
  18. SODIUM VALPROATE [Concomitant]
     Active Substance: VALPROATE SODIUM
     Dosage: 1250 MG, DAILY
     Route: 048
     Dates: start: 201404
  19. PROMETHAZINE [Concomitant]
     Active Substance: PROMETHAZINE\PROMETHAZINE HYDROCHLORIDE
     Indication: AGITATION
     Dosage: 25 MG, UNK (PER 24 HOURS)
     Route: 048
  20. PROMETHAZINE [Concomitant]
     Active Substance: PROMETHAZINE\PROMETHAZINE HYDROCHLORIDE
     Dosage: 25 MG, UNK (PER 24 HOURS)
     Route: 048
  21. HALOPERIDOL. [Concomitant]
     Active Substance: HALOPERIDOL
     Indication: AGITATION
     Dosage: 2 TO 5 MG PER 24 HOURS
     Route: 048
  22. PROCYCLIDINE [Concomitant]
     Active Substance: PROCYCLIDINE
     Indication: EXTRAPYRAMIDAL DISORDER
     Dosage: 5 MG, PRN
     Route: 048
  23. TRIHEXYPHENIDYL [Concomitant]
     Active Substance: TRIHEXYPHENIDYL
     Dosage: 6 MG, DAILY (PRE ADM)
     Route: 048

REACTIONS (5)
  - Death [Fatal]
  - General physical health deterioration [Unknown]
  - Hypothyroidism [Not Recovered/Not Resolved]
  - Faecal vomiting [Unknown]
  - Circulatory collapse [Unknown]

NARRATIVE: CASE EVENT DATE: 20140715
